FAERS Safety Report 9305693 (Version 2)
Quarter: 2013Q4

REPORT INFORMATION
  Report Type: Report from Study
  Country: US (occurrence: US)
  Receive Date: 20130523
  Receipt Date: 20131114
  Transmission Date: 20140711
  Serious: Yes (Other)
  Sender: FDA-Public Use
  Company Number: US-ELI_LILLY_AND_COMPANY-US201107005371

PATIENT
  Age: 73 Year
  Sex: Female

DRUGS (4)
  1. TERIPARATIDE [Suspect]
     Indication: OSTEOPOROSIS
     Dosage: 20 UG, QID
     Route: 065
     Dates: start: 20110701
  2. TERIPARATIDE [Suspect]
     Dosage: 20 UG, UNK
     Route: 065
  3. TERIPARATIDE [Suspect]
     Dosage: 20 UG, QID
     Route: 065
  4. TERIPARATIDE [Suspect]
     Dosage: UNK, QD
     Route: 065
     Dates: start: 20110712

REACTIONS (14)
  - Gait disturbance [Recovered/Resolved]
  - Neck injury [Unknown]
  - Blood potassium decreased [Unknown]
  - Herpes zoster [Unknown]
  - Malaise [Unknown]
  - Fatigue [Unknown]
  - Pain [Not Recovered/Not Resolved]
  - Pain [Unknown]
  - Drug dose omission [Unknown]
  - Body height decreased [Unknown]
  - Back pain [Unknown]
  - Upper limb fracture [Unknown]
  - Fall [Unknown]
  - Nasopharyngitis [Unknown]
